FAERS Safety Report 26140921 (Version 1)
Quarter: 2025Q4

REPORT INFORMATION
  Report Type: Spontaneous
  Country: US (occurrence: US)
  Receive Date: 20251210
  Receipt Date: 20251210
  Transmission Date: 20260117
  Serious: No
  Sender: BRACCO
  Company Number: US-BRACCO-2025US08287

PATIENT
  Age: 35 Year
  Sex: Female
  Weight: 103 kg

DRUGS (2)
  1. MULTIHANCE [Suspect]
     Active Substance: GADOBENATE DIMEGLUMINE
     Indication: Magnetic resonance imaging heart
     Dosage: 30 ML, SINGLE
     Dates: start: 20251124, end: 20251124
  2. VISIPAQUE [Concomitant]
     Active Substance: IODIXANOL
     Indication: Computerised tomogram
     Dosage: UNK

REACTIONS (1)
  - Urticaria [Recovered/Resolved]

NARRATIVE: CASE EVENT DATE: 20251124
